FAERS Safety Report 5307139-7 (Version None)
Quarter: 2007Q2

REPORT INFORMATION
  Report Type: 
  Country: None (occurrence: None)
  Receive Date: 20070425
  Receipt Date: 20070418
  Transmission Date: 20071010
  Serious: Yes (Other)
  Sender: FDA-Public Use
  Company Number: CA-AMGEN-US215887

PATIENT
  Sex: Female

DRUGS (3)
  1. ENBREL [Suspect]
     Indication: PSORIASIS
     Route: 058
     Dates: start: 20060528
  2. BETAMETHASONE VALERATE [Concomitant]
  3. ADVIL [Concomitant]

REACTIONS (4)
  - ERYTHEMA MULTIFORME [None]
  - NASAL MUCOSAL DISORDER [None]
  - NASOPHARYNGITIS [None]
  - STREPTOCOCCAL INFECTION [None]
